FAERS Safety Report 8295684-4 (Version None)
Quarter: 2012Q2

REPORT INFORMATION
  Report Type: 
  Country: None (occurrence: None)
  Receive Date: 20120418
  Receipt Date: 20120216
  Transmission Date: 20120825
  Serious: Yes (Hospitalization, Other)
  Sender: FDA-Public Use
  Company Number: BR-ASTRAZENECA-2011SE52408

PATIENT
  Age: 69 Year
  Sex: Female
  Weight: 60 kg

DRUGS (2)
  1. ENTOCORT EC [Suspect]
     Indication: HAEMORRHOIDS
     Route: 054
     Dates: start: 20110901, end: 20110901
  2. METOPROLOL SUCCINATE [Suspect]
     Indication: HYPERTENSION
     Route: 048
     Dates: start: 19990101

REACTIONS (3)
  - BOWEL MOVEMENT IRREGULARITY [None]
  - HAEMORRHOIDS [None]
  - OFF LABEL USE [None]
